FAERS Safety Report 9068750 (Version 1)
Quarter: 2013Q1

REPORT INFORMATION
  Report Type: Spontaneous
  Country: US (occurrence: None)
  Receive Date: 20130212
  Receipt Date: 20130212
  Transmission Date: 20140127
  Serious: Yes (Life-Threatening, Hospitalization, Disabling)
  Sender: FDA-Public Use
  Company Number: None

PATIENT
  Sex: Male
  Weight: 101.6 kg

DRUGS (3)
  1. CLOZAPINE 50 MG [Suspect]
     Indication: SCHIZOPHRENIA
     Route: 048
     Dates: start: 20130117, end: 20130206
  2. CLOZAPINE 50 MG [Suspect]
     Indication: BIPOLAR DISORDER
     Route: 048
     Dates: start: 20130117, end: 20130206
  3. CLOZAPINE 50 MG [Suspect]
     Indication: SCHIZOAFFECTIVE DISORDER
     Route: 048
     Dates: start: 20130117, end: 20130206

REACTIONS (8)
  - Lung disorder [None]
  - Mental status changes [None]
  - Confusional state [None]
  - Troponin increased [None]
  - Neuroleptic malignant syndrome [None]
  - Myocarditis [None]
  - Sepsis [None]
  - Paralysis [None]
